FAERS Safety Report 9690857 (Version 1)
Quarter: 2013Q4

REPORT INFORMATION
  Report Type: Spontaneous
  Country: US (occurrence: None)
  Receive Date: 20131114
  Receipt Date: 20131114
  Transmission Date: 20140711
  Serious: Yes (Other)
  Sender: FDA-Public Use
  Company Number: None

PATIENT
  Age: 38 Year
  Sex: Male
  Weight: 79.38 kg

DRUGS (2)
  1. DOLUTEGRAVIR [Suspect]
     Indication: ACQUIRED IMMUNODEFICIENCY SYNDROME
     Dates: start: 20130901
  2. CHLORPROMAZINE [Suspect]
     Indication: SCHIZOPHRENIA

REACTIONS (3)
  - Psychiatric symptom [None]
  - Drug interaction [None]
  - Drug level decreased [None]
